FAERS Safety Report 8197351-4 (Version None)
Quarter: 2012Q1

REPORT INFORMATION
  Report Type: 
  Country: None (occurrence: None)
  Receive Date: 20120309
  Receipt Date: 20120306
  Transmission Date: 20120608
  Serious: Yes (Hospitalization)
  Sender: FDA-Public Use
  Company Number: US-GILEAD-2012-0051670

PATIENT
  Sex: Female

DRUGS (4)
  1. LETAIRIS [Suspect]
     Indication: PULMONARY HYPERTENSION
     Dosage: 10 MG, UNK
     Route: 048
     Dates: start: 20090923
  2. LETAIRIS [Suspect]
     Indication: VASCULAR RESISTANCE PULMONARY INCREASED
  3. LETAIRIS [Suspect]
     Indication: HAEMODYNAMIC TEST ABNORMAL
  4. TYVASO [Concomitant]

REACTIONS (1)
  - DYSPNOEA [None]
